FAERS Safety Report 13016569 (Version 2)
Quarter: 2018Q1

REPORT INFORMATION
  Report Type: Spontaneous
  Country: CA (occurrence: CA)
  Receive Date: 20161212
  Receipt Date: 20180118
  Transmission Date: 20180508
  Serious: Yes (Other)
  Sender: FDA-Public Use
  Company Number: CA-CONCORDIA PHARMACEUTICALS INC.-GSH201612-006332

PATIENT
  Sex: Male

DRUGS (6)
  1. ARAVA [Suspect]
     Active Substance: LEFLUNOMIDE
     Indication: PRODUCT USED FOR UNKNOWN INDICATION
     Route: 065
  2. METHOTREXATE. [Concomitant]
     Active Substance: METHOTREXATE
     Dates: start: 201401, end: 201405
  3. ENBREL [Concomitant]
     Active Substance: ETANERCEPT
  4. PLAQUENIL [Suspect]
     Active Substance: HYDROXYCHLOROQUINE SULFATE
     Indication: PRODUCT USED FOR UNKNOWN INDICATION
     Route: 065
  5. ACTEMRA [Concomitant]
     Active Substance: TOCILIZUMAB
     Dates: start: 201511, end: 201611
  6. CIMZIA [Concomitant]
     Active Substance: CERTOLIZUMAB PEGOL
     Dates: start: 201405, end: 201511

REACTIONS (5)
  - Infection [Unknown]
  - Pain in extremity [Unknown]
  - Coronary artery occlusion [Unknown]
  - Drug ineffective [Unknown]
  - Arthralgia [Unknown]
